FAERS Safety Report 17750177 (Version 1)
Quarter: 2020Q2

REPORT INFORMATION
  Report Type: Spontaneous
  Country: US (occurrence: US)
  Receive Date: 20200505
  Receipt Date: 20200505
  Transmission Date: 20200714
  Serious: Yes (Disabling)
  Sender: FDA-Public Use
  Company Number: None

PATIENT
  Age: 64 Year
  Sex: Female
  Weight: 78.75 kg

DRUGS (20)
  1. VITAMIN D3 [Concomitant]
     Active Substance: CHOLECALCIFEROL
  2. PROTONIX [Concomitant]
     Active Substance: PANTOPRAZOLE SODIUM
  3. RESTASIS [Concomitant]
     Active Substance: CYCLOSPORINE
  4. COENZYME Q10 [Concomitant]
     Active Substance: UBIDECARENONE
  5. TRIPLE STRENGTH FISH OIL [Concomitant]
  6. PEPCID [Concomitant]
     Active Substance: FAMOTIDINE
  7. BIOTIN [Concomitant]
     Active Substance: BIOTIN
  8. COLACE [Concomitant]
     Active Substance: DOCUSATE SODIUM
  9. SWEET^N LOW ZERO CALORIE SWEETENER [Suspect]
     Active Substance: SACCHARIN
     Indication: BLOOD GLUCOSE DECREASED
  10. CRESTOR [Concomitant]
     Active Substance: ROSUVASTATIN CALCIUM
  11. EPIPEN [Concomitant]
     Active Substance: EPINEPHRINE
  12. ALLEGRA [Concomitant]
     Active Substance: FEXOFENADINE HYDROCHLORIDE
  13. CLONAZEPAM. [Concomitant]
     Active Substance: CLONAZEPAM
  14. INTRAROSA PRASTERONE [Concomitant]
  15. LOTEMAX OPHTH GEL [Concomitant]
  16. MVI WITHOUT IRON [Concomitant]
  17. SYNTHROID [Concomitant]
     Active Substance: LEVOTHYROXINE SODIUM
  18. BABY ASA [Concomitant]
     Active Substance: ASPIRIN
  19. VITAMIN C [Concomitant]
     Active Substance: ASCORBIC ACID
  20. ZANTAC [Suspect]
     Active Substance: RANITIDINE HYDROCHLORIDE

REACTIONS (1)
  - Bladder pain [None]

NARRATIVE: CASE EVENT DATE: 20170601
